FAERS Safety Report 8293721-4 (Version None)
Quarter: 2012Q2

REPORT INFORMATION
  Report Type: 
  Country: None (occurrence: None)
  Receive Date: 20120412
  Receipt Date: 20120403
  Transmission Date: 20120825
  Serious: Yes (Hospitalization)
  Sender: FDA-Public Use
  Company Number: ACO_29350_2012

PATIENT
  Age: 79 Year
  Sex: Female
  Weight: 90.7 kg

DRUGS (10)
  1. FUROSEMIDE [Concomitant]
  2. MECLIZINE [Concomitant]
  3. AVONEX [Concomitant]
  4. SYMMETREL [Concomitant]
  5. AMITRIPTYLINE HCL [Concomitant]
  6. CELEBREX [Concomitant]
  7. PHENERGAN [Concomitant]
  8. AMPYRA [Suspect]
     Indication: MULTIPLE SCLEROSIS
     Dates: end: 20111201
  9. VASOTEC [Concomitant]
  10. OXCARBAZEPINE [Concomitant]

REACTIONS (3)
  - FALL [None]
  - FEMUR FRACTURE [None]
  - INTESTINAL OBSTRUCTION [None]
